FAERS Safety Report 9462544 (Version 2)
Quarter: 2013Q3

REPORT INFORMATION
  Report Type: Spontaneous
  Country: US (occurrence: US)
  Receive Date: 20130816
  Receipt Date: 20130903
  Transmission Date: 20140515
  Serious: Yes (Hospitalization)
  Sender: FDA-Public Use
  Company Number: US-ASTRAZENECA-2013SE62550

PATIENT
  Age: 55 Year
  Sex: Male
  Weight: 115.7 kg

DRUGS (10)
  1. LISINOPRIL HCT [Suspect]
     Route: 048
  2. SYMBICORT [Suspect]
     Indication: DYSPNOEA
     Dosage: UNKNOWN DOSE AND FREQUENCY
     Route: 055
  3. METHOTREXATE [Concomitant]
  4. HUMIRA [Concomitant]
  5. FOLIC ACID [Concomitant]
  6. CYCLOBENZOPRINE [Concomitant]
  7. LYRICA [Concomitant]
  8. CYMBALTA [Concomitant]
  9. XARELTO [Concomitant]
  10. VIT D [Concomitant]
     Dosage: 50000 UNK

REACTIONS (5)
  - Deep vein thrombosis [Unknown]
  - Pulmonary embolism [Unknown]
  - Rheumatoid arthritis [Unknown]
  - Fibromyalgia [Unknown]
  - Off label use [Unknown]
